FAERS Safety Report 9908877 (Version 1)
Quarter: 2014Q1

REPORT INFORMATION
  Report Type: Spontaneous
  Country: JP (occurrence: JP)
  Receive Date: 20140219
  Receipt Date: 20140219
  Transmission Date: 20141002
  Serious: Yes (Other)
  Sender: FDA-Public Use
  Company Number: JP-ASTELLAS-2014JP001348

PATIENT
  Age: 63 Year
  Sex: Female
  Weight: 66 kg

DRUGS (11)
  1. PROGRAF [Suspect]
     Indication: RHEUMATOID ARTHRITIS
     Dosage: 3 MG, UID/QD
     Route: 065
     Dates: start: 2010
  2. SIMPONI [Suspect]
     Indication: RHEUMATOID ARTHRITIS
     Dosage: UNK
     Route: 058
     Dates: start: 20120301
  3. METHOTREXATE [Suspect]
     Indication: RHEUMATOID ARTHRITIS
     Dosage: 8 MG, WEEKLY
     Route: 065
     Dates: start: 20120618, end: 20121118
  4. METHOTREXATE [Suspect]
     Dosage: 10 MG, WEEKLY
     Route: 065
     Dates: start: 20121119
  5. CELECOX [Concomitant]
     Indication: RHEUMATOID ARTHRITIS
     Dosage: 400 MG, UID/QD
     Route: 048
  6. PARIET [Concomitant]
     Dosage: 10 MG, UID/QD
     Route: 048
  7. LOXONIN [Concomitant]
     Dosage: 100 MG, UID/QD
     Route: 061
  8. PURSENNID                          /00142207/ [Concomitant]
     Dosage: 24 MG, UID/QD
     Route: 048
  9. BACTRAMIN [Concomitant]
     Dosage: 2 DF, UID/QD
     Route: 048
  10. PREMINENT [Concomitant]
     Dosage: 1 DF, UID/QD
     Route: 048
  11. FOSAMAC [Concomitant]
     Dosage: 35 MG, WEEKLY
     Route: 048

REACTIONS (2)
  - Interstitial lung disease [Unknown]
  - Liver disorder [Recovering/Resolving]
